FAERS Safety Report 9518453 (Version 1)
Quarter: 2013Q3

REPORT INFORMATION
  Report Type: Report from Study
  Country: KR (occurrence: KR)
  Receive Date: 20130912
  Receipt Date: 20130912
  Transmission Date: 20140515
  Serious: Yes (Hospitalization)
  Sender: FDA-Public Use
  Company Number: KR-AMGEN-KORCT2013064012

PATIENT
  Age: 74 Year
  Sex: Female

DRUGS (18)
  1. DARBEPOETIN ALFA [Suspect]
     Indication: ANAEMIA
     Dosage: 40 MUG, QWK
     Route: 042
     Dates: start: 20130605, end: 20130828
  2. RENALMIN [Concomitant]
     Dosage: UNK
     Route: 048
  3. ASPIRIN [Concomitant]
     Dosage: 100 MG, UNK
     Route: 048
  4. FERROBA-U [Concomitant]
     Dosage: 160 MG, UNK
     Route: 048
  5. AMLODIPINE CAMSILATE [Concomitant]
     Dosage: 5 MG, UNK
     Route: 048
  6. LOSARTAN POTASSIUM [Concomitant]
     Dosage: 50 MG, UNK
     Route: 048
  7. CARVEDILOL [Concomitant]
     Dosage: 50 MG, UNK
     Route: 048
  8. CALCIUM ACETATE [Concomitant]
     Dosage: 710 MG, UNK
     Route: 048
  9. ADALAT [Concomitant]
     Dosage: 60 MG, UNK
     Route: 048
  10. CALCITRIOL [Concomitant]
     Dosage: 0.25 MUG, UNK
     Route: 048
  11. PREDNISOLONE [Concomitant]
     Dosage: 10 MG, UNK
     Route: 048
     Dates: start: 20130617, end: 20130624
  12. REBAMIPIDE [Concomitant]
     Dosage: 100 MG, UNK
     Route: 048
     Dates: start: 20130617, end: 20130624
  13. ERDOSTEINE [Concomitant]
     Dosage: 300 MG, UNK
     Route: 048
     Dates: start: 20130617, end: 20130624
  14. CODENING [Concomitant]
     Dosage: UNK
     Route: 048
     Dates: start: 20130617, end: 20130624
  15. PANTOPRAZOLE [Concomitant]
     Dosage: 40 MG, UNK
     Route: 048
     Dates: start: 20130617, end: 20130808
  16. ITOPRIDE HYDROCHLORIDE [Concomitant]
     Dosage: 50 MG, UNK
     Route: 048
     Dates: start: 20130617, end: 20130808
  17. HUMALOG [Concomitant]
     Dosage: 8 IU, UNK
     Route: 065
  18. MEGESTROL [Concomitant]
     Indication: ANAEMIA
     Dosage: 20 ML, UNK
     Route: 048
     Dates: start: 20130617, end: 20130808

REACTIONS (1)
  - Decreased appetite [Unknown]
